FAERS Safety Report 12768820 (Version 1)
Quarter: 2016Q3

REPORT INFORMATION
  Report Type: Spontaneous
  Country: US (occurrence: US)
  Receive Date: 20160921
  Receipt Date: 20160921
  Transmission Date: 20161109
  Serious: No
  Sender: FDA-Public Use
  Company Number: US-JAZZ-2016-US-010242

PATIENT
  Sex: Female

DRUGS (24)
  1. VYVANSE [Suspect]
     Active Substance: LISDEXAMFETAMINE DIMESYLATE
     Indication: PRODUCT USED FOR UNKNOWN INDICATION
     Dosage: 30 MG
  2. LINZESS [Concomitant]
     Active Substance: LINACLOTIDE
  3. SIMVASTATIN. [Concomitant]
     Active Substance: SIMVASTATIN
  4. SYNTHROID [Concomitant]
     Active Substance: LEVOTHYROXINE SODIUM
  5. XYREM [Suspect]
     Active Substance: SODIUM OXYBATE
     Dosage: 4.75 G, BID
     Route: 048
     Dates: start: 201502
  6. DOMPERIDONE [Concomitant]
     Active Substance: DOMPERIDONE
  7. VITAMIN D3 [Concomitant]
     Active Substance: CHOLECALCIFEROL
  8. XYREM [Suspect]
     Active Substance: SODIUM OXYBATE
     Indication: NARCOLEPSY
     Dosage: 2.25 G, BID
     Route: 048
     Dates: start: 200808, end: 200809
  9. XYREM [Suspect]
     Active Substance: SODIUM OXYBATE
     Dosage: DOSE ADJUSTMENTS
     Route: 048
     Dates: start: 200809, end: 201502
  10. NAPROXEN. [Concomitant]
     Active Substance: NAPROXEN
  11. STRATTERA [Concomitant]
     Active Substance: ATOMOXETINE HYDROCHLORIDE
  12. VERAPAMIL [Concomitant]
     Active Substance: VERAPAMIL HYDROCHLORIDE
  13. PROLIA [Concomitant]
     Active Substance: DENOSUMAB
  14. METOPROLOL SUCCINATE. [Concomitant]
     Active Substance: METOPROLOL SUCCINATE
  15. PREMARIN [Concomitant]
     Active Substance: ESTROGENS, CONJUGATED
  16. CITALOPRAM [Concomitant]
     Active Substance: CITALOPRAM HYDROBROMIDE
  17. FELODIPINE. [Concomitant]
     Active Substance: FELODIPINE
  18. PREVACID [Concomitant]
     Active Substance: LANSOPRAZOLE
  19. CELEBREX [Concomitant]
     Active Substance: CELECOXIB
  20. PAXIL [Concomitant]
     Active Substance: PAROXETINE HYDROCHLORIDE
  21. LIDODERM [Concomitant]
     Active Substance: LIDOCAINE
  22. CALCIUM CITRATE [Concomitant]
     Active Substance: CALCIUM CITRATE
  23. FLONASE [Concomitant]
     Active Substance: FLUTICASONE PROPIONATE
  24. VITAMIN B12 [Concomitant]
     Active Substance: CYANOCOBALAMIN

REACTIONS (1)
  - Hypertension [Not Recovered/Not Resolved]
